FAERS Safety Report 17975604 (Version 2)
Quarter: 2020Q4

REPORT INFORMATION
  Report Type: Spontaneous
  Country: US (occurrence: US)
  Receive Date: 20200702
  Receipt Date: 20201014
  Transmission Date: 20210113
  Serious: Yes (Other)
  Sender: FDA-Public Use
  Company Number: US-GLAXOSMITHKLINE-US2019AMR240499

PATIENT
  Sex: Female

DRUGS (1)
  1. ZEJULA [Suspect]
     Active Substance: NIRAPARIB
     Indication: OVARIAN CANCER
     Dosage: UNK
     Dates: start: 20170724

REACTIONS (5)
  - Adverse drug reaction [Unknown]
  - Nausea [Unknown]
  - Respiratory tract infection [Unknown]
  - Malaise [Unknown]
  - Anxiety [Not Recovered/Not Resolved]
